FAERS Safety Report 8475049-2 (Version None)
Quarter: 2012Q2

REPORT INFORMATION
  Report Type: 
  Country: None (occurrence: None)
  Receive Date: 20120628
  Receipt Date: 20120619
  Transmission Date: 20120825
  Serious: Yes (Death, Hospitalization, Other)
  Sender: FDA-Public Use
  Company Number: US-PFIZER INC-2003179461US

PATIENT
  Age: 30 Year
  Sex: Female

DRUGS (4)
  1. ACETAMINOPHEN [Suspect]
     Indication: SUICIDE ATTEMPT
     Dosage: UNK
  2. PAROXETINE [Suspect]
     Indication: SUICIDE ATTEMPT
     Dosage: UNKNOWN NUMBER 10 MG
  3. IBUPROFEN [Suspect]
     Indication: SUICIDE ATTEMPT
     Dosage: 15 IBUPROFEN, 200 MG
  4. DIPHENHYDRAMINE HCL [Suspect]
     Indication: SUICIDE ATTEMPT
     Dosage: 48 DIPHENHYDRAMINE 25 MG

REACTIONS (7)
  - ELECTROCARDIOGRAM QT PROLONGED [None]
  - METABOLIC ACIDOSIS [None]
  - HYPOTENSION [None]
  - OVERDOSE [None]
  - COMPLETED SUICIDE [None]
  - HEPATIC FAILURE [None]
  - RESPIRATORY FAILURE [None]
